FAERS Safety Report 22321036 (Version 1)
Quarter: 2023Q2

REPORT INFORMATION
  Report Type: Spontaneous
  Country: HU (occurrence: HU)
  Receive Date: 20230515
  Receipt Date: 20230515
  Transmission Date: 20230722
  Serious: Yes (Other)
  Sender: FDA-Public Use
  Company Number: HU-002147023-NVSC2023HU098320

PATIENT
  Age: 55 Year
  Sex: Female

DRUGS (3)
  1. METFORMIN [Suspect]
     Active Substance: METFORMIN HYDROCHLORIDE
     Indication: Glycosylated haemoglobin increased
     Dosage: UNK
     Route: 065
  2. METFORMIN [Suspect]
     Active Substance: METFORMIN HYDROCHLORIDE
     Indication: Cerebrovascular accident
  3. TASIGNA [Suspect]
     Active Substance: NILOTINIB
     Indication: Product used for unknown indication
     Dosage: 400 MILLIGRAM, QD, 200 MG, BID
     Route: 065
     Dates: start: 201310, end: 202209

REACTIONS (6)
  - Cerebrovascular accident [Unknown]
  - Hyperbilirubinaemia [Unknown]
  - Polycythaemia vera [Unknown]
  - Lipase increased [Recovered/Resolved]
  - Hyperlipidaemia [Unknown]
  - Gene mutation identification test positive [Unknown]

NARRATIVE: CASE EVENT DATE: 20131001
